FAERS Safety Report 5328775-8 (Version None)
Quarter: 2007Q2

REPORT INFORMATION
  Report Type: 
  Country: None (occurrence: None)
  Receive Date: 20070516
  Receipt Date: 20070516
  Transmission Date: 20071010
  Serious: Yes (Hospitalization)
  Sender: FDA-Public Use
  Company Number: None

PATIENT
  Sex: Female
  Weight: 62.14 kg

DRUGS (1)
  1. TEMOZOLOMIDE [Suspect]
     Dosage: 5040 MG

REACTIONS (1)
  - MENTAL STATUS CHANGES [None]
